FAERS Safety Report 25997001 (Version 2)
Quarter: 2025Q4

REPORT INFORMATION
  Report Type: Spontaneous
  Country: GB (occurrence: GB)
  Receive Date: 20251104
  Receipt Date: 20251111
  Transmission Date: 20260118
  Serious: Yes (Death, Hospitalization, Other)
  Sender: SANOFI AVENTIS
  Company Number: GB-SA-2025SA321338

PATIENT
  Age: 84 Year
  Sex: Female

DRUGS (1)
  1. KEVZARA [Suspect]
     Active Substance: SARILUMAB
     Indication: Rheumatoid arthritis
     Dosage: 200 MG
     Route: 058
     Dates: start: 202411, end: 202510

REACTIONS (4)
  - Lung disorder [Fatal]
  - Speech disorder [Unknown]
  - Lower respiratory tract infection [Unknown]
  - Dyspnoea [Unknown]
